FAERS Safety Report 4883171-2 (Version None)
Quarter: 2006Q1

REPORT INFORMATION
  Report Type: 
  Country: None (occurrence: None)
  Receive Date: 20060117
  Receipt Date: 20060117
  Transmission Date: 20060701
  Serious: Yes (Hospitalization)
  Sender: FDA-Public Use
  Company Number: None

PATIENT
  Age: 87 Year
  Sex: Male
  Weight: 68.4932 kg

DRUGS (1)
  1. COUMADIN [Suspect]
     Indication: ATRIAL FIBRILLATION
     Dosage: 5 MG    TTSS   PO; AND   2.5 MG  MWF  PO
     Route: 048
     Dates: start: 20040223, end: 20051223

REACTIONS (5)
  - DRUG TOXICITY [None]
  - HAEMATOCHEZIA [None]
  - INTERNATIONAL NORMALISED RATIO ABNORMAL [None]
  - PROTHROMBIN TIME PROLONGED [None]
  - RECTAL HAEMORRHAGE [None]
